FAERS Safety Report 20867253 (Version 5)
Quarter: 2022Q3

REPORT INFORMATION
  Report Type: Report from Study
  Country: US (occurrence: US)
  Receive Date: 20220524
  Receipt Date: 20220719
  Transmission Date: 20221027
  Serious: Yes (Death, Life-Threatening, Hospitalization, Other)
  Sender: FDA-Public Use
  Company Number: US-HORIZON THERAPEUTICS-HZN-2022-003663

PATIENT

DRUGS (2)
  1. KRYSTEXXA [Suspect]
     Active Substance: PEGLOTICASE
     Indication: Product used for unknown indication
     Dosage: FIRST INFUSION
     Route: 042
     Dates: start: 20220301
  2. KRYSTEXXA [Suspect]
     Active Substance: PEGLOTICASE
     Dosage: LAST INFUSION
     Route: 042
     Dates: start: 20220527

REACTIONS (11)
  - Pain in extremity [Not Recovered/Not Resolved]
  - Gait disturbance [Recovering/Resolving]
  - Gout [Recovering/Resolving]
  - Death [Fatal]
  - Arrhythmia [Recovering/Resolving]
  - Cardiac pacemaker insertion [Recovered/Resolved]
  - Hypotension [Unknown]
  - Pain [Not Recovered/Not Resolved]
  - Localised infection [Not Recovered/Not Resolved]
  - Venous occlusion [Unknown]
  - Coronary artery disease [Unknown]

NARRATIVE: CASE EVENT DATE: 20220101
